FAERS Safety Report 14062536 (Version 4)
Quarter: 2017Q4

REPORT INFORMATION
  Report Type: Spontaneous
  Country: DK (occurrence: DK)
  Receive Date: 20171009
  Receipt Date: 20171019
  Transmission Date: 20180321
  Serious: Yes (Hospitalization)
  Sender: FDA-Public Use
  Company Number: DK-MYLANLABS-2017M1062973

PATIENT
  Age: 75 Year
  Sex: Female

DRUGS (14)
  1. SIMVASTATIN ACTAVIS [Concomitant]
     Active Substance: SIMVASTATIN
     Indication: HYPERCHOLESTEROLAEMIA
     Dosage: STYRKE: 40 MG
     Route: 048
     Dates: start: 20140925
  2. VENTOLINE [Concomitant]
     Active Substance: ALBUTEROL
     Indication: CHRONIC OBSTRUCTIVE PULMONARY DISEASE
     Dosage: STYRKE: 0.1 MG/DOSIS - DOSIS: 1 PUST EFTER BEHOV
     Route: 055
     Dates: start: 20150407
  3. GEMADOL RETARD [Suspect]
     Active Substance: TRAMADOL HYDROCHLORIDE
     Indication: BACK PAIN
     Dosage: STYRKE: 50 MG
     Route: 048
     Dates: start: 20170922, end: 20170923
  4. METOPROLOLSUCCINAT HEXAL [Concomitant]
     Active Substance: METOPROLOL SUCCINATE
     Indication: ARRHYTHMIA
     Dosage: STYRKE: 100 MG
     Route: 048
     Dates: start: 20120618
  5. TOUJEO [Concomitant]
     Active Substance: INSULIN GLARGINE
     Indication: DIABETES MELLITUS
     Dosage: STYRKE: 300 ENHEDER/ML - DOSIS: 69 ENHEDER AFTEN
     Route: 058
     Dates: start: 20161116
  6. NEVANAC [Concomitant]
     Active Substance: NEPAFENAC
     Indication: EYE INFLAMMATION
     Dosage: STYRKE: 1 MG/ML
     Route: 050
     Dates: start: 20170419, end: 20170925
  7. DIURAL [Concomitant]
     Active Substance: FUROSEMIDE
     Indication: HYPERTENSION
     Dosage: STYRKE: 40 MG
     Route: 048
     Dates: start: 20120614
  8. LIXIANA [Concomitant]
     Active Substance: EDOXABAN TOSYLATE
     Indication: THROMBOSIS PROPHYLAXIS
     Dosage: STYRKE: 30 MG
     Route: 048
     Dates: start: 20170307
  9. MOXONAT [Concomitant]
     Indication: HYPERTENSION
     Dosage: 0.2 MG, UNK
     Route: 048
     Dates: start: 20150918
  10. PINEX [Concomitant]
     Active Substance: ACETAMINOPHEN
     Indication: PAIN
     Dosage: STRENGTH: 500 MG - DOSE: 2 TABLETS AS NEEDED NO MORE THAN 4 TIMES DAILY WITH INTERVALS OF AT LEAST 6
     Route: 048
     Dates: start: 20150331
  11. TRAJENTA [Concomitant]
     Active Substance: LINAGLIPTIN
     Indication: TYPE 2 DIABETES MELLITUS
     Dosage: STYRKE: 5 MG
     Route: 048
     Dates: start: 20150616
  12. SPIRIVA [Concomitant]
     Active Substance: TIOTROPIUM BROMIDE MONOHYDRATE
     Indication: CHRONIC OBSTRUCTIVE PULMONARY DISEASE
     Dosage: STYRKE: 2.5 ?G
     Route: 055
     Dates: start: 20160617
  13. ANCOZAN [Concomitant]
     Active Substance: LOSARTAN POTASSIUM
     Indication: HYPERTENSION
     Dosage: STYRKE: 50 MG
     Route: 048
     Dates: start: 20150616
  14. COMBIVENT [Concomitant]
     Active Substance: ALBUTEROL SULFATE\IPRATROPIUM BROMIDE
     Indication: CHRONIC OBSTRUCTIVE PULMONARY DISEASE
     Dosage: STYRKE: 2.5+0.5 MG/BEHOLDER
     Route: 055

REACTIONS (6)
  - Cough [Recovered/Resolved]
  - Confusional state [Recovered/Resolved]
  - Oxygen saturation decreased [Recovered/Resolved]
  - Dyspnoea [Recovered/Resolved]
  - Somnolence [Recovered/Resolved]
  - Memory impairment [Recovered/Resolved]

NARRATIVE: CASE EVENT DATE: 20170923
